FAERS Safety Report 9992813 (Version 2)
Quarter: 2014Q2

REPORT INFORMATION
  Report Type: Report from Study
  Country: AT (occurrence: AT)
  Receive Date: 20140310
  Receipt Date: 20140416
  Transmission Date: 20141212
  Serious: Yes (Hospitalization)
  Sender: FDA-Public Use
  Company Number: AT-BRISTOL-MYERS SQUIBB COMPANY-20384707

PATIENT
  Age: 47 Year
  Sex: Male

DRUGS (5)
  1. ABILIFY [Suspect]
     Route: 048
     Dates: start: 20131003, end: 20131010
  2. SEROQUEL [Interacting]
     Dosage: 1DF=200-400MG
     Route: 048
     Dates: start: 20131004, end: 20131013
  3. DEPAKINE [Interacting]
     Dosage: 1DF=2000-3000 MG/DAY
     Route: 048
     Dates: start: 20131002, end: 20131016
  4. TEMESTA [Suspect]
     Dosage: 1DF=7.5 UNITS NOS?22OCT-05NOV13:2.5MG
     Route: 048
     Dates: start: 20131002, end: 20131105
  5. RISPERDAL [Concomitant]
     Route: 048
     Dates: start: 20131012, end: 20131121

REACTIONS (3)
  - Delirium [Recovered/Resolved]
  - Mania [Recovered/Resolved]
  - Drug interaction [Unknown]
